FAERS Safety Report 5273335-0 (Version None)
Quarter: 2007Q1

REPORT INFORMATION
  Report Type: 
  Country: None (occurrence: None)
  Receive Date: 20070319
  Receipt Date: 20070308
  Transmission Date: 20070707
  Serious: Yes (Death, Life-Threatening, Other)
  Sender: FDA-Public Use
  Company Number: 2007SP004386

PATIENT
  Age: 52 Year
  Sex: Male

DRUGS (1)
  1. TEMODAL [Suspect]
     Indication: GLIOBLASTOMA MULTIFORME
     Dosage: 150 MG/M2

REACTIONS (3)
  - PRESCRIBED OVERDOSE [None]
  - SEPSIS [None]
  - WHITE BLOOD CELL COUNT DECREASED [None]
